FAERS Safety Report 8591256-2 (Version None)
Quarter: 2012Q3

REPORT INFORMATION
  Report Type: 
  Country: None (occurrence: None)
  Receive Date: 20120814
  Receipt Date: 20120810
  Transmission Date: 20120928
  Serious: Yes (Other)
  Sender: FDA-Public Use
  Company Number: US-AMGEN-USASP2011037155

PATIENT
  Age: 80 Year
  Sex: Male

DRUGS (2)
  1. PREDNISONE TAB [Concomitant]
     Dosage: 50 MG, UNK
  2. NPLATE [Suspect]
     Indication: THROMBOCYTOPENIA
     Dosage: 10 MUG/KG, UNK
     Route: 058
     Dates: start: 20110106, end: 20110405

REACTIONS (3)
  - ANTI-PLATELET ANTIBODY NEGATIVE [None]
  - SPLENOMEGALY [None]
  - PLATELET COUNT DECREASED [None]
